FAERS Safety Report 10153182 (Version 1)
Quarter: 2014Q2

REPORT INFORMATION
  Report Type: Spontaneous
  Country: US (occurrence: US)
  Receive Date: 20140505
  Receipt Date: 20140505
  Transmission Date: 20141212
  Serious: Yes (Hospitalization)
  Sender: FDA-Public Use
  Company Number: US-BAYER-2014-064617

PATIENT
  Age: 32 Year
  Sex: Female
  Weight: 104.31 kg

DRUGS (21)
  1. BEYAZ [Suspect]
  2. YAZ [Suspect]
  3. GAS-X [Concomitant]
     Dosage: 80 MG, UNK
  4. ZYRTEC [Concomitant]
     Dosage: 10 MG, UNK
  5. IBUPROFEN [Concomitant]
     Dosage: 600 MG, UNK
  6. HYDROCODONE [Concomitant]
  7. OMEPRAZOLE [Concomitant]
     Dosage: 20 MG, UNK
  8. PROBIOTICA [Concomitant]
     Dosage: 10 BILLION
  9. DOXYCYCLINE [Concomitant]
     Dosage: UNK
     Dates: start: 20130130
  10. HYZAAR [Concomitant]
     Dosage: 100-12.5 MG
  11. BIAXIN [Concomitant]
     Dosage: 500 MG, UNK
  12. PREDNISONE [Concomitant]
     Dosage: 10 MG, UNK
  13. ALBUTEROL [Concomitant]
     Indication: ASTHMA
  14. LEVAQUIN [Concomitant]
     Dosage: 500 MG, UNK
     Dates: start: 20130313
  15. POTASSIUM [Concomitant]
  16. NORCO [Concomitant]
  17. ULTRAM [Concomitant]
  18. GUAIFENESIN [Concomitant]
  19. CODEINE [Concomitant]
  20. LOSARTAN [Concomitant]
  21. RIVAROXABAN [Concomitant]

REACTIONS (3)
  - Pulmonary embolism [None]
  - Pelvic venous thrombosis [Recovered/Resolved]
  - Vena cava thrombosis [Recovered/Resolved]
